FAERS Safety Report 7913212-7 (Version None)
Quarter: 2011Q4

REPORT INFORMATION
  Report Type: 
  Country: None (occurrence: None)
  Receive Date: 20111114
  Receipt Date: 20111102
  Transmission Date: 20120403
  Serious: Yes (Hospitalization, Other)
  Sender: FDA-Public Use
  Company Number: US-ALLERGAN-1114555US

PATIENT
  Age: 16 Year
  Sex: Male

DRUGS (3)
  1. BOTULINUM TOXIN TYPE A [Suspect]
     Indication: SALIVARY HYPERSECRETION
     Dosage: 200 UNITS, SINGLE
     Route: 030
  2. MIDAZOLAM [Concomitant]
     Indication: SEDATION
  3. BOTULINUM TOXIN TYPE A [Suspect]
     Indication: BRUXISM

REACTIONS (2)
  - SALIVARY GLAND CALCULUS [None]
  - SIALOADENITIS [None]
